FAERS Safety Report 6006929-5 (Version None)
Quarter: 2008Q4

REPORT INFORMATION
  Report Type: 
  Country: None (occurrence: None)
  Receive Date: 20081217
  Receipt Date: 20071121
  Transmission Date: 20090506
  Serious: No
  Sender: FDA-Public Use
  Company Number: US-ASTRAZENECA-2007UW26833

PATIENT
  Age: 53 Year
  Sex: Male
  Weight: 124.7 kg

DRUGS (7)
  1. CRESTOR [Suspect]
     Indication: LOW DENSITY LIPOPROTEIN INCREASED
     Route: 048
  2. LISINOPRIL [Concomitant]
  3. TRICOR [Concomitant]
  4. ASCORBIC ACID [Concomitant]
  5. MULTI-VITAMINS [Concomitant]
  6. MAALOX [Concomitant]
  7. ALEVE [Concomitant]

REACTIONS (2)
  - CONSTIPATION [None]
  - SEXUAL DYSFUNCTION [None]
